FAERS Safety Report 20473597 (Version 1)
Quarter: 2022Q1

REPORT INFORMATION
  Report Type: Spontaneous
  Country: US (occurrence: US)
  Receive Date: 20220215
  Receipt Date: 20220215
  Transmission Date: 20220423
  Serious: Yes (Other)
  Sender: FDA-Public Use
  Company Number: US-SA-SAC20220211000594

PATIENT
  Age: 59 Year
  Sex: Male

DRUGS (1)
  1. ZANTAC [Suspect]
     Active Substance: RANITIDINE HYDROCHLORIDE
     Indication: Dyspepsia
     Dosage: UNK UNK, QD (DOSAGE: UNKNOWN AT THIS TIME)
     Route: 065
     Dates: start: 198501, end: 202001

REACTIONS (1)
  - Colorectal cancer [Unknown]

NARRATIVE: CASE EVENT DATE: 20181219
